FAERS Safety Report 9538926 (Version 1)
Quarter: 2013Q2

REPORT INFORMATION
  Report Type: Spontaneous
  Country: US (occurrence: None)
  Receive Date: 20130517
  Receipt Date: 20130517
  Transmission Date: 20140414
  Serious: Yes (Other)
  Sender: FDA-Public Use
  Company Number: 1000043898

PATIENT
  Sex: Female

DRUGS (2)
  1. VIIBRYD [Suspect]
     Dosage: 10MG (10MG, 1 IN 1 D) ORAL
     Route: 048
  2. VIIBRYD [Suspect]
     Dosage: 40MG (40MG, 1 IN 1D) ORAL
     Route: 048

REACTIONS (1)
  - Sedation [None]
